FAERS Safety Report 18721827 (Version 5)
Quarter: 2021Q4

REPORT INFORMATION
  Report Type: Report from Study
  Country: KR (occurrence: KR)
  Receive Date: 20210111
  Receipt Date: 20211209
  Transmission Date: 20220303
  Serious: Yes (Hospitalization)
  Sender: FDA-Public Use
  Company Number: KR-ABBVIE-21K-090-3721724-00

PATIENT
  Age: 58 Year
  Sex: Male
  Weight: 63 kg

DRUGS (1)
  1. GLECAPREVIR\PIBRENTASVIR [Suspect]
     Active Substance: GLECAPREVIR\PIBRENTASVIR
     Indication: Chronic hepatitis C
     Route: 048
     Dates: start: 20200702, end: 20200826

REACTIONS (1)
  - Gastric varices [Recovered/Resolved]

NARRATIVE: CASE EVENT DATE: 20200927
